FAERS Safety Report 25527067 (Version 3)
Quarter: 2025Q4

REPORT INFORMATION
  Report Type: Report from Study
  Country: JP (occurrence: JP)
  Receive Date: 20250708
  Receipt Date: 20251112
  Transmission Date: 20260117
  Serious: Yes (Hospitalization, Other)
  Sender: ABBVIE
  Company Number: JP-TAKEDA-2025TJP006615

PATIENT
  Age: 52 Year
  Sex: Male
  Weight: 60 kg

DRUGS (11)
  1. LEUPROLIDE ACETATE [Suspect]
     Active Substance: LEUPROLIDE ACETATE
     Indication: Bulbospinal muscular atrophy congenital
     Dosage: 11.25 MILLIGRAM
     Route: 058
     Dates: start: 20180120, end: 20250405
  2. POTASSIUM ASPARTATE [Concomitant]
     Active Substance: POTASSIUM ASPARTATE
     Indication: Hypokalaemia
     Dosage: 900 MILLIGRAM
     Route: 065
     Dates: start: 20240511
  3. BISOPROLOL FUMARATE [Concomitant]
     Active Substance: BISOPROLOL FUMARATE
     Indication: Tachycardia
     Dosage: 0.625 MILLIGRAM
     Route: 065
     Dates: end: 20180418
  4. BISOPROLOL FUMARATE [Concomitant]
     Active Substance: BISOPROLOL FUMARATE
     Indication: Tachycardia
     Dosage: 5 MILLIGRAM
     Route: 065
     Dates: start: 20201107
  5. BISOPROLOL FUMARATE [Concomitant]
     Active Substance: BISOPROLOL FUMARATE
     Indication: Tachycardia
     Dosage: 2.5 MILLIGRAM
     Route: 065
     Dates: start: 20180419, end: 20201106
  6. EPLERENONE [Concomitant]
     Active Substance: EPLERENONE
     Indication: Cardiac failure
     Dosage: 12.5 MILLIGRAM
     Route: 065
     Dates: start: 20241125
  7. ENTRESTO [Concomitant]
     Active Substance: SACUBITRIL\VALSARTAN
     Indication: Cardiac failure
     Dosage: 400 MILLIGRAM
     Route: 065
     Dates: start: 20241130
  8. ENTRESTO [Concomitant]
     Active Substance: SACUBITRIL\VALSARTAN
     Indication: Cardiac failure
     Dosage: 200 MILLIGRAM
     Route: 065
     Dates: start: 20241125, end: 20241129
  9. RISEDRONATE SODIUM [Concomitant]
     Active Substance: RISEDRONATE SODIUM
     Indication: Osteoporosis
     Dosage: 17.5 MILLIGRAM
     Route: 065
     Dates: start: 20210807
  10. SHAKUYAKUKANZOTO [Concomitant]
     Active Substance: HERBALS
     Indication: Muscle spasms
     Dosage: 2.5 GRAM
     Route: 065
     Dates: start: 20210807
  11. TOCOPHERYL NICOTINATE, D-.ALPHA. [Concomitant]
     Active Substance: TOCOPHERYL NICOTINATE, D-.ALPHA.
     Indication: Metabolic dysfunction-associated liver disease
     Dosage: 300 MILLIGRAM
     Route: 065
     Dates: start: 20200808

REACTIONS (1)
  - Fracture [Recovering/Resolving]

NARRATIVE: CASE EVENT DATE: 20250208
